FAERS Safety Report 23804100 (Version 2)
Quarter: 2024Q2

REPORT INFORMATION
  Report Type: Spontaneous
  Country: DE (occurrence: DE)
  Receive Date: 20240501
  Receipt Date: 20240617
  Transmission Date: 20240715
  Serious: Yes (Hospitalization)
  Sender: FDA-Public Use
  Company Number: DE-BoehringerIngelheim-2024-BI-024957

PATIENT
  Age: 86 Year
  Sex: Male
  Weight: 49 kg

DRUGS (18)
  1. OFEV [Suspect]
     Active Substance: NINTEDANIB
     Indication: Interstitial lung disease
     Route: 048
     Dates: start: 202210, end: 20240203
  2. Ipratropiumbromid 125 mcg/1 ml Stulln Verneblerlsg. [Concomitant]
     Indication: Product used for unknown indication
     Dosage: UP TO 4X/DAY?FORM OF ADMIN.: SOLUTION FOR NEBULIZER
  3. Budenobronch 0.5mg/2ml [Concomitant]
     Indication: Product used for unknown indication
     Dosage: UP TO 4X/DAY?FORM OF ADMIN.: SUSPENSION
  4. SimvaHexal 40 mg Filmtabletten [Concomitant]
     Indication: Product used for unknown indication
     Dosage: 0-0-1-0
  5. ASPIRIN [Concomitant]
     Active Substance: ASPIRIN
     Indication: Product used for unknown indication
     Dosage: 0-1-0-0
  6. Metoprololsuccinat Heumann 23.75 mg Retardtabletten [Concomitant]
     Indication: Product used for unknown indication
     Dosage: 0.5-0-0-0
  7. Omeprazol - 1A Pharma 20 mg [Concomitant]
     Indication: Dyspepsia
     Dosage: 0-0-1-0
  8. TORSEMIDE [Concomitant]
     Active Substance: TORSEMIDE
     Indication: Product used for unknown indication
     Dosage: 0.5-0-0-0
  9. Allopurinol 300 Heumann [Concomitant]
     Indication: Product used for unknown indication
     Dosage: 0-1-0-0
  10. Telmisartan - 1A Pharma 40 mg Tabletten [Concomitant]
     Indication: Product used for unknown indication
     Dosage: 0-0.5-0-0
  11. VITAMIN B COMPLEX NOS [Concomitant]
     Active Substance: CYANOCOBALAMIN\PYRIDOXINE HYDROCHLORIDE\RIBOFLAVIN\SODIUM PANTOTHENATE\THIAMINE HYDROCHLORIDE\VITAMI
     Indication: Product used for unknown indication
     Dosage: 1-0-0-0
  12. Tovedeso 3.5 mg Retardtabletten [Concomitant]
     Indication: Product used for unknown indication
     Dosage: 1-0-0-0
  13. Folsan 5 mg [Concomitant]
     Indication: Product used for unknown indication
     Dosage: 1-0-0-0
  14. Solifenacin - 1A Pharma 5 mg Filmtabletten [Concomitant]
     Indication: Product used for unknown indication
     Dosage: 1-0-0-0
  15. Zinc + Selenium [Concomitant]
     Indication: Product used for unknown indication
     Dosage: 0-1-0-0
  16. Dekristol 20000IU [Concomitant]
     Indication: Product used for unknown indication
     Dosage: 0-0-1-0
  17. OXYGEN [Concomitant]
     Active Substance: OXYGEN
     Indication: Product used for unknown indication
     Dosage: 5 LITER/MIN - 16 HOURS/DAY
  18. Terazosin Aristo 5 mg Tabletten [Concomitant]
     Indication: Product used for unknown indication
     Dosage: 1-0-0-0

REACTIONS (2)
  - Cerebrovascular accident [Recovered/Resolved with Sequelae]
  - Cachexia [Unknown]

NARRATIVE: CASE EVENT DATE: 20240203
